FAERS Safety Report 7097790-9 (Version None)
Quarter: 2010Q4

REPORT INFORMATION
  Report Type: 
  Country: None (occurrence: None)
  Receive Date: 20101112
  Receipt Date: 20101102
  Transmission Date: 20110411
  Serious: Yes (Hospitalization, Other)
  Sender: FDA-Public Use
  Company Number: ES-RANBAXY-2010RR-37871

PATIENT
  Age: 37 Year
  Sex: Male

DRUGS (3)
  1. GABAPENTIN [Suspect]
     Dosage: 27 G, UNK
  2. CLONAZEPAM [Concomitant]
  3. OXCARBAZEPINE [Concomitant]
     Dosage: 90 MG, UNK

REACTIONS (2)
  - DEPENDENCE [None]
  - DRUG ABUSE [None]
